FAERS Safety Report 22628625 (Version 1)
Quarter: 2023Q2

REPORT INFORMATION
  Report Type: Spontaneous
  Country: FR (occurrence: FR)
  Receive Date: 20230622
  Receipt Date: 20230622
  Transmission Date: 20230722
  Serious: Yes (Life-Threatening, Other)
  Sender: FDA-Public Use
  Company Number: FR-CELLTRION HEALTHCARE HUNGARY KFT-2023FR011822

PATIENT
  Age: 86 Year
  Sex: Female

DRUGS (12)
  1. RITUXIMAB-PVVR [Suspect]
     Active Substance: RITUXIMAB-PVVR
     Indication: Marginal zone lymphoma
     Dosage: 1000 MG ON DAY 1
  2. RITUXIMAB-PVVR [Suspect]
     Active Substance: RITUXIMAB-PVVR
     Indication: Warm autoimmune haemolytic anaemia
     Dosage: 1000 MG ON DAY 15
  3. RITUXIMAB-PVVR [Suspect]
     Active Substance: RITUXIMAB-PVVR
     Dosage: ONE 500 MG INFUSION (SECOND COURSE OF RTX (FOUR INFUSIONS OF 375MG/M2/WEEK FOR FOUR WEEKS)
  4. PREDNISONE [Suspect]
     Active Substance: PREDNISONE
     Indication: Marginal zone lymphoma
     Dosage: TAPERED TO 5 MG/DAY OVER SIX MONTHS AND STOPPED AFTER EIGHT MONTHS
     Route: 048
  5. PREDNISONE [Suspect]
     Active Substance: PREDNISONE
     Indication: Warm autoimmune haemolytic anaemia
     Dosage: DUE TO THE FIRST RELAPSE, SHE RECEIVED PREDNISONE 1 MG/KG/DAY ASSOCIATED WITH RTX
  6. PREDNISONE [Suspect]
     Active Substance: PREDNISONE
     Dosage: 1 MG/KG/DAY (ONE YEAR LATER, WAIHA RELAPSED AND PATIENT RECEIVED PREDNISONE 1MG/KG/DAY)
  7. GLICLAZIDE [Concomitant]
     Active Substance: GLICLAZIDE
     Indication: Type 2 diabetes mellitus
  8. DEXCHLORPHENIRAMINE [Concomitant]
     Active Substance: DEXCHLORPHENIRAMINE
     Indication: Premedication
     Dosage: 5 MG
  9. METHYLPREDNISOLONE [Concomitant]
     Active Substance: METHYLPREDNISOLONE
     Indication: Premedication
     Dosage: 60 MG
  10. METHYLPREDNISOLONE [Concomitant]
     Active Substance: METHYLPREDNISOLONE
     Dosage: 1 MG/KG/DAY AND TAPERED OVER ONE WEEK
  11. METFORMIN [Concomitant]
     Active Substance: METFORMIN HYDROCHLORIDE
     Indication: Type 2 diabetes mellitus
  12. VILDAGLIPTIN [Concomitant]
     Active Substance: VILDAGLIPTIN
     Indication: Type 2 diabetes mellitus

REACTIONS (2)
  - Anaphylactic reaction [Recovered/Resolved]
  - Serum sickness [Recovered/Resolved]
